FAERS Safety Report 9792767 (Version 1)
Quarter: 2014Q1

REPORT INFORMATION
  Report Type: Spontaneous
  Country: US (occurrence: US)
  Receive Date: 20140102
  Receipt Date: 20140102
  Transmission Date: 20141002
  Serious: No
  Sender: FDA-Public Use
  Company Number: US-SA-2013SA111436

PATIENT
  Age: 60 Year
  Sex: Female
  Weight: 175 kg

DRUGS (5)
  1. AUBAGIO [Suspect]
     Indication: MULTIPLE SCLEROSIS
     Route: 048
     Dates: start: 20130522
  2. ALL OTHER THERAPEUTIC PRODUCTS [Concomitant]
     Indication: BLADDER DISORDER
  3. BENAZEPRIL [Concomitant]
     Indication: BLOOD PRESSURE
  4. WELLBUTRIN [Concomitant]
     Indication: DEPRESSION
  5. COMBIGAN [Concomitant]
     Indication: GLAUCOMA

REACTIONS (3)
  - Alopecia [Recovered/Resolved]
  - Pruritus [Recovered/Resolved]
  - Skin burning sensation [Recovered/Resolved]
